FAERS Safety Report 8002485-0 (Version None)
Quarter: 2011Q4

REPORT INFORMATION
  Report Type: 
  Country: None (occurrence: None)
  Receive Date: 20111222
  Receipt Date: 20111220
  Transmission Date: 20120403
  Serious: Yes (Hospitalization)
  Sender: FDA-Public Use
  Company Number: US-JNJFOC-2003114777

PATIENT
  Sex: Female
  Weight: 59 kg

DRUGS (3)
  1. SUDAFED 24 HOUR [Suspect]
     Indication: RESPIRATORY DISORDER
     Dosage: DAILY DOSE TEXT: 1 TABLET QD
     Route: 048
     Dates: start: 20031021, end: 20031024
  2. MULTI-VITAMINS [Concomitant]
  3. SUDAFED 24 HOUR [Suspect]
     Route: 048

REACTIONS (9)
  - HEART RATE INCREASED [None]
  - ASTHENIA [None]
  - BLOOD PRESSURE DECREASED [None]
  - DEHYDRATION [None]
  - SOMNOLENCE [None]
  - ARRHYTHMIA SUPRAVENTRICULAR [None]
  - DIZZINESS [None]
  - LOSS OF CONSCIOUSNESS [None]
  - NAUSEA [None]
